FAERS Safety Report 22207715 (Version 2)
Quarter: 2023Q2

REPORT INFORMATION
  Report Type: Spontaneous
  Country: US (occurrence: US)
  Receive Date: 20230413
  Receipt Date: 20230609
  Transmission Date: 20230722
  Serious: No
  Sender: FDA-Public Use
  Company Number: US-GSK-US2023AMR051191

PATIENT
  Sex: Female
  Weight: 65.215 kg

DRUGS (1)
  1. BENLYSTA [Suspect]
     Active Substance: BELIMUMAB
     Indication: Lupus nephritis
     Dosage: 200 MG, WE
     Route: 058

REACTIONS (3)
  - Injection site urticaria [Recovered/Resolved]
  - Lip swelling [Unknown]
  - Oral discomfort [Unknown]
